FAERS Safety Report 11365514 (Version 2)
Quarter: 2018Q4

REPORT INFORMATION
  Report Type: Spontaneous
  Country: CA (occurrence: CA)
  Receive Date: 20150811
  Receipt Date: 20181016
  Transmission Date: 20190204
  Serious: Yes (Death, Other)
  Sender: FDA-Public Use
  Company Number: CA-009507513-1508CAN003807

PATIENT
  Age: 79 Year
  Sex: Male
  Weight: 100 kg

DRUGS (8)
  1. ENALAPRIL MALEATE. [Concomitant]
     Active Substance: ENALAPRIL MALEATE
     Dosage: 10 MG, QD
     Route: 065
  2. IMDUR [Concomitant]
     Active Substance: ISOSORBIDE MONONITRATE
     Dosage: 60 MG, QD
     Route: 065
  3. PRO AAS [Concomitant]
     Dosage: 80 MG, QD
     Route: 065
  4. JANUMET [Suspect]
     Active Substance: METFORMIN HYDROCHLORIDE\SITAGLIPTIN PHOSPHATE
     Indication: DIABETES MELLITUS
     Dosage: 1 DF, BID
     Route: 048
     Dates: start: 20140904, end: 2015
  5. INSULIN HUMAN, ISOPHANE [Concomitant]
     Active Substance: INSULIN HUMAN
     Dosage: 16 IU, HS
  6. COLCHICINE. [Concomitant]
     Active Substance: COLCHICINE
     Dosage: 0.6 MG, QD
     Route: 065
  7. INSULIN HUMAN, ISOPHANE [Concomitant]
     Active Substance: INSULIN HUMAN
     Dosage: 36 IU,AM
     Route: 065
  8. INSULIN-TORONTO [Concomitant]
     Dosage: 16 IU, TID
     Route: 065

REACTIONS (9)
  - Disseminated intravascular coagulation [Fatal]
  - Multiple organ dysfunction syndrome [Fatal]
  - Troponin increased [Fatal]
  - Pancreatitis [Fatal]
  - Blood creatine phosphokinase increased [Fatal]
  - Shock [Fatal]
  - Hypotension [Fatal]
  - Acute kidney injury [Fatal]
  - Respiratory failure [Fatal]
